FAERS Safety Report 7546577-9 (Version None)
Quarter: 2011Q2

REPORT INFORMATION
  Report Type: 
  Country: None (occurrence: None)
  Receive Date: 20110607
  Receipt Date: 20110523
  Transmission Date: 20111010
  Serious: Yes (Hospitalization)
  Sender: FDA-Public Use
  Company Number: DSJ-2011-10227

PATIENT
  Age: 62 Year
  Sex: Male

DRUGS (3)
  1. GLIMEPIRIDE [Concomitant]
  2. VILDAGLIPTIN/METFORMIN [Concomitant]
  3. AMLODIPINE BESYLATE AND OLMESARTAN MEDOXOMIL [Suspect]
     Indication: HYPERTENSION
     Dosage: 40/10 MG (1 IN 1 D), PER ORAL
     Route: 048
     Dates: start: 20090101, end: 20110501

REACTIONS (4)
  - HELICOBACTER INFECTION [None]
  - ANAEMIA [None]
  - OEDEMA PERIPHERAL [None]
  - EYE OEDEMA [None]
